FAERS Safety Report 23664220 (Version 1)
Quarter: 2024Q1

REPORT INFORMATION
  Report Type: Report from Study
  Country: CA (occurrence: CA)
  Receive Date: 20240322
  Receipt Date: 20240322
  Transmission Date: 20240409
  Serious: Yes (Other)
  Sender: FDA-Public Use
  Company Number: CA-JNJFOC-20240280401

PATIENT
  Age: 45 Year
  Sex: Female

DRUGS (1)
  1. SIMPONI [Suspect]
     Active Substance: GOLIMUMAB
     Indication: Ankylosing spondylitis
     Route: 058

REACTIONS (7)
  - Injection site haemorrhage [Unknown]
  - Injection site bruising [Not Recovered/Not Resolved]
  - Influenza [Unknown]
  - Gastrointestinal disorder [Unknown]
  - Cholelithiasis [Unknown]
  - Hepatomegaly [Unknown]
  - Weight increased [Recovered/Resolved]

NARRATIVE: CASE EVENT DATE: 20210101
